FAERS Safety Report 9357814 (Version 1)
Quarter: 2013Q2

REPORT INFORMATION
  Report Type: Spontaneous
  Country: US (occurrence: US)
  Receive Date: 20130620
  Receipt Date: 20130620
  Transmission Date: 20140414
  Serious: Yes (Other)
  Sender: FDA-Public Use
  Company Number: US-ASTRAZENECA-2013SE42381

PATIENT
  Age: 62 Year
  Sex: Female
  Weight: 89.3 kg

DRUGS (4)
  1. ARIMIDEX [Suspect]
     Indication: BREAST CANCER FEMALE
     Dates: start: 20121029
  2. PROLIA [Suspect]
     Indication: BREAST CANCER FEMALE
     Route: 058
     Dates: start: 20120924, end: 20120924
  3. PROLIA [Suspect]
     Indication: BREAST CANCER FEMALE
     Route: 058
     Dates: start: 20120924, end: 20120924
  4. PROLIA [Suspect]
     Indication: OSTEOPOROSIS
     Route: 058
     Dates: start: 20120924, end: 20120924

REACTIONS (5)
  - Hypogammaglobulinaemia [Not Recovered/Not Resolved]
  - White blood cell count decreased [Unknown]
  - Musculoskeletal pain [Recovering/Resolving]
  - Arthralgia [Not Recovered/Not Resolved]
  - Bone pain [Not Recovered/Not Resolved]
